FAERS Safety Report 4948230-4 (Version None)
Quarter: 2006Q1

REPORT INFORMATION
  Report Type: 
  Country: None (occurrence: None)
  Receive Date: 20060313
  Receipt Date: 20060227
  Transmission Date: 20060701
  Serious: Yes (Death)
  Sender: FDA-Public Use
  Company Number: 2006RR-01699

PATIENT
  Age: 38 Year
  Sex: Female

DRUGS (10)
  1. RANITIDINE [Suspect]
     Dosage: 50 MG
  2. REFLIN (CEFAZOLIN SODIUM) [Suspect]
     Dosage: 4 G
  3. LEVOTHYROXINE SODIUM [Concomitant]
  4. PROPOFOL [Concomitant]
  5. SUFENTANIL CITRATE [Concomitant]
  6. NIMBEX [Concomitant]
  7. METHYLPREDNISOLONE [Concomitant]
  8. KETOROLAC TROMETHAMINE [Concomitant]
  9. PARCETAMOL (PARACETAMOL) [Concomitant]
  10. DEXAMETHASONE TAB [Concomitant]

REACTIONS (7)
  - CARDIOGENIC SHOCK [None]
  - DRUG HYPERSENSITIVITY [None]
  - EOSINOPHILIC MYOCARDITIS [None]
  - JUGULAR VEIN DISTENSION [None]
  - NORMOCHROMIC NORMOCYTIC ANAEMIA [None]
  - POST PROCEDURAL COMPLICATION [None]
  - RESPIRATORY ARREST [None]
